FAERS Safety Report 9061839 (Version 4)
Quarter: 2013Q1

REPORT INFORMATION
  Report Type: Spontaneous
  Country: US (occurrence: None)
  Receive Date: 20130122
  Receipt Date: 20130326
  Transmission Date: 20140127
  Serious: Yes (Other)
  Sender: FDA-Public Use
  Company Number: ACO_33771_2013

PATIENT
  Age: 70 Year
  Sex: Female

DRUGS (7)
  1. AMPYRA [Suspect]
     Indication: GAIT DISTURBANCE
     Dates: start: 20120729
  2. ALENDRONATE (ALENDRONATE SODIUM) [Concomitant]
  3. OMEPRAZOLE (OMEPRAZOLE) [Concomitant]
  4. FUROSEMIDE (FUROSEMIDE SODIUM) [Concomitant]
  5. COPAXONE (GLATIRAMER ACETATE) [Concomitant]
  6. VENTOLIN (SALBUTAMOL SULFATE) [Concomitant]
  7. AMLODIPINE (AMLODIPINE BESILATE) [Concomitant]

REACTIONS (3)
  - Wrist fracture [None]
  - Fall [None]
  - Neck pain [None]
